FAERS Safety Report 4358042-0 (Version None)
Quarter: 2004Q2

REPORT INFORMATION
  Report Type: 
  Country: None (occurrence: None)
  Receive Date: 20040510
  Receipt Date: 20040427
  Transmission Date: 20050107
  Serious: Yes (Hospitalization)
  Sender: FDA-Public Use
  Company Number: US-JNJFOC-20040405963

PATIENT
  Age: 82 Year
  Sex: Female
  Weight: 53.5244 kg

DRUGS (13)
  1. INFLIXIMAB (INFLIXIMAB, RECOMBINANT) LYOPHILIZED POWDER [Suspect]
     Indication: RHEUMATOID ARTHRITIS
     Dosage: INTRAVENOUS
     Route: 042
     Dates: start: 20030110
  2. INDAPAMIDE [Concomitant]
  3. ACIPHEX [Concomitant]
  4. PREDNISONE [Concomitant]
  5. METOPROLOL (METOPROLOL) [Concomitant]
  6. LEVOTHYROXINE SODIUM [Concomitant]
  7. DIGOXIN [Concomitant]
  8. FOLIC ACID [Concomitant]
  9. ARAVA [Concomitant]
  10. CALCIUM (CALCIUM) [Concomitant]
  11. FOSAMAX [Concomitant]
  12. PROCRIT [Concomitant]
  13. MULTIVITAMIN [Concomitant]

REACTIONS (3)
  - DECUBITUS ULCER [None]
  - LOSS OF CONSCIOUSNESS [None]
  - URINARY TRACT INFECTION [None]
